FAERS Safety Report 8333408-2 (Version None)
Quarter: 2012Q2

REPORT INFORMATION
  Report Type: 
  Country: None (occurrence: None)
  Receive Date: 20120503
  Receipt Date: 20120502
  Transmission Date: 20120825
  Serious: Yes (Other)
  Sender: FDA-Public Use
  Company Number: JP-PFIZER INC-2012101793

PATIENT
  Sex: Female

DRUGS (2)
  1. CEPHADOL [Interacting]
  2. ALPRAZOLAM [Suspect]
     Indication: AUTONOMIC NEUROPATHY
     Route: 048

REACTIONS (2)
  - INTRAOCULAR PRESSURE INCREASED [None]
  - DRUG INTERACTION [None]
